FAERS Safety Report 8104336-2 (Version None)
Quarter: 2012Q1

REPORT INFORMATION
  Report Type: 
  Country: None (occurrence: None)
  Receive Date: 20120130
  Receipt Date: 20120120
  Transmission Date: 20120608
  Serious: Yes (Life-Threatening, Hospitalization)
  Sender: FDA-Public Use
  Company Number: US-BAYER-201018852NA

PATIENT
  Age: 21 Year
  Sex: Female
  Weight: 97 kg

DRUGS (8)
  1. MEDROXYPROGESTERONE [Concomitant]
     Dosage: UNK
     Dates: start: 20060504
  2. YASMIN [Suspect]
     Indication: MENSTRUATION IRREGULAR
     Dosage: UNK UNK, UNK
     Route: 048
     Dates: start: 20030101
  3. KEFLEX [Concomitant]
  4. FLOMAX [Concomitant]
     Dosage: 0.4 MG, UNK
     Route: 048
     Dates: start: 20070309
  5. HYDROCODONE BITARTRATE AND ACETAMINOPHEN [Concomitant]
     Dosage: 5 MG, UNK
     Route: 048
     Dates: start: 20070309
  6. ANCEF [Concomitant]
  7. CLINDAMYCIN [Concomitant]
  8. MOTRIN [Concomitant]

REACTIONS (7)
  - CELLULITIS [None]
  - THROMBOSIS [None]
  - ORGAN FAILURE [None]
  - DEEP VEIN THROMBOSIS [None]
  - THROMBOPHLEBITIS SUPERFICIAL [None]
  - NEPHROLITHIASIS [None]
  - ARTHROPOD BITE [None]
